FAERS Safety Report 4591799-2 (Version None)
Quarter: 2005Q1

REPORT INFORMATION
  Report Type: 
  Country: None (occurrence: None)
  Receive Date: 20050125
  Receipt Date: 20040817
  Transmission Date: 20050727
  Serious: No
  Sender: FDA-Public Use
  Company Number: USA040875751

PATIENT
  Age: 85 Year
  Sex: Female
  Weight: 41 kg

DRUGS (3)
  1. FORTEO [Suspect]
     Indication: OSTEOPOROSIS
     Dates: start: 20040803
  2. TIAZAC [Concomitant]
  3. FLOMAX [Concomitant]

REACTIONS (4)
  - ADVERSE DRUG REACTION [None]
  - EAR CONGESTION [None]
  - NAUSEA [None]
  - VOMITING [None]
